FAERS Safety Report 10874240 (Version 1)
Quarter: 2015Q1

REPORT INFORMATION
  Report Type: Spontaneous
  Country: US (occurrence: None)
  Receive Date: 20150224
  Receipt Date: 20150224
  Transmission Date: 20150721
  Serious: Yes (Hospitalization, Other)
  Sender: FDA-Public Use
  Company Number: US-ZYDUS-006752

PATIENT
  Age: 23 Year
  Sex: Male

DRUGS (1)
  1. LAMOTRIGINE (LAMOTRIGINE) [Suspect]
     Active Substance: LAMOTRIGINE
     Route: 048

REACTIONS (10)
  - Exposure via ingestion [None]
  - Tremor [None]
  - Delirium [None]
  - Movement disorder [None]
  - Foaming at mouth [None]
  - Toxicity to various agents [None]
  - Electrocardiogram QRS complex prolonged [None]
  - Intentional overdose [None]
  - Myoclonus [None]
  - Agitation [None]
